FAERS Safety Report 12847290 (Version 1)
Quarter: 2016Q4

REPORT INFORMATION
  Report Type: Spontaneous
  Country: US (occurrence: US)
  Receive Date: 20161013
  Receipt Date: 20161013
  Transmission Date: 20170207
  Serious: Yes (Hospitalization, Disabling, Other)
  Sender: FDA-Public Use
  Company Number: None

PATIENT
  Age: 8 Month
  Sex: Male
  Weight: 10.35 kg

DRUGS (2)
  1. OMNICEF [Concomitant]
     Active Substance: CEFDINIR
  2. BABY TEETHING (HYLAND HOMEOPATHIC) [Suspect]
     Active Substance: HOMEOPATHICS
     Indication: TEETHING
     Dosage: ?          QUANTITY:1 TABLET(S);?
     Route: 060
     Dates: start: 20151001, end: 20161004

REACTIONS (2)
  - Neutrophil count decreased [None]
  - Febrile convulsion [None]

NARRATIVE: CASE EVENT DATE: 20151009
